FAERS Safety Report 5872525-3 (Version None)
Quarter: 2008Q3

REPORT INFORMATION
  Report Type: 
  Country: None (occurrence: None)
  Receive Date: 20080902
  Receipt Date: 20080827
  Transmission Date: 20090109
  Serious: Yes (Death)
  Sender: FDA-Public Use
  Company Number: 2008-03146

PATIENT
  Age: 60 Year
  Sex: Female
  Weight: 50 kg

DRUGS (5)
  1. VELCADE [Suspect]
     Indication: MULTIPLE MYELOMA
     Dosage: 1.7 MG, INTRAVENOUS; 1.3 MG, INTRAVENOUS
     Route: 042
     Dates: start: 20080527, end: 20080624
  2. VELCADE [Suspect]
     Indication: MULTIPLE MYELOMA
     Dosage: 1.7 MG, INTRAVENOUS; 1.3 MG, INTRAVENOUS
     Route: 042
     Dates: start: 20080723, end: 20080801
  3. MUCOSTA (REBAMIOIDE) [Concomitant]
  4. FAMOTIDINE [Concomitant]
  5. LENDORM [Concomitant]

REACTIONS (5)
  - CEREBRAL HAEMORRHAGE [None]
  - CONDITION AGGRAVATED [None]
  - GENITAL HERPES [None]
  - MULTIPLE MYELOMA [None]
  - URINARY RETENTION [None]
